FAERS Safety Report 11113608 (Version 2)
Quarter: 2015Q2

REPORT INFORMATION
  Report Type: Spontaneous
  Country: AU (occurrence: AU)
  Receive Date: 20150514
  Receipt Date: 20150603
  Transmission Date: 20150821
  Serious: Yes (Other)
  Sender: FDA-Public Use
  Company Number: AU-ASTRAZENECA-2015SE43679

PATIENT
  Sex: Male

DRUGS (1)
  1. BYETTA [Suspect]
     Active Substance: EXENATIDE
     Route: 065
     Dates: start: 201409

REACTIONS (4)
  - Hyperglycaemia [Unknown]
  - Pancreatic carcinoma [Unknown]
  - Therapy cessation [Unknown]
  - Metastases to liver [Unknown]
